FAERS Safety Report 8143339-9 (Version None)
Quarter: 2012Q1

REPORT INFORMATION
  Report Type: 
  Country: None (occurrence: None)
  Receive Date: 20120217
  Receipt Date: 20120207
  Transmission Date: 20120608
  Serious: Yes (Other)
  Sender: FDA-Public Use
  Company Number: US-ABBOTT-12P-163-0903466-00

PATIENT
  Sex: Male
  Weight: 83.99 kg

DRUGS (2)
  1. ASPIRIN [Concomitant]
     Indication: PREMEDICATION
  2. SIMCOR [Suspect]
     Indication: LOW DENSITY LIPOPROTEIN INCREASED
     Dosage: 500 MG/20MG QHS
     Route: 048
     Dates: start: 20090101

REACTIONS (4)
  - ROTATOR CUFF SYNDROME [None]
  - PARAESTHESIA [None]
  - PRURITUS [None]
  - FLUSHING [None]
